FAERS Safety Report 20180238 (Version 1)
Quarter: 2021Q4

REPORT INFORMATION
  Report Type: Spontaneous
  Country: US (occurrence: US)
  Receive Date: 20211214
  Receipt Date: 20211214
  Transmission Date: 20220303
  Serious: Yes (Hospitalization, Other)
  Sender: FDA-Public Use
  Company Number: US-ENDO PHARMACEUTICALS INC-2021-013346

PATIENT
  Age: 80 Year
  Sex: Male

DRUGS (2)
  1. OLANZAPINE [Suspect]
     Active Substance: OLANZAPINE
     Indication: Insomnia
     Dosage: 5 MG, UNKNOWN
     Route: 048
  2. UNSPECIFIED INGREDIENT [Concomitant]
     Active Substance: UNSPECIFIED INGREDIENT
     Indication: Abdominal infection
     Dosage: UNK UNKNOWN, UNKNOWN
     Route: 042

REACTIONS (6)
  - Hyperventilation [Recovered/Resolved]
  - Mental status changes [Recovered/Resolved]
  - Respiratory alkalosis [Recovered/Resolved]
  - Hypotension [Recovered/Resolved]
  - Pulmonary oedema [Recovered/Resolved]
  - Off label use [Recovered/Resolved]
